FAERS Safety Report 5744649-2 (Version None)
Quarter: 2008Q2

REPORT INFORMATION
  Report Type: 
  Country: None (occurrence: None)
  Receive Date: 20080520
  Receipt Date: 20080512
  Transmission Date: 20081010
  Serious: Yes (Hospitalization)
  Sender: FDA-Public Use
  Company Number: US-GENENTECH-260950

PATIENT
  Age: 64 Year
  Sex: Female

DRUGS (5)
  1. BEVACIZUMAB [Suspect]
     Indication: HEAD AND NECK CANCER
     Dates: start: 20080227, end: 20080409
  2. CISPLATIN [Concomitant]
     Indication: HEAD AND NECK CANCER
     Dates: start: 20080227, end: 20080423
  3. RADIATION [Concomitant]
     Indication: HEAD AND NECK CANCER
     Dates: start: 20080227, end: 20080411
  4. LISINOPRIL [Concomitant]
     Indication: HYPERTENSION
  5. AMLODIPINE [Concomitant]
     Indication: HYPERTENSION

REACTIONS (2)
  - DELIRIUM [None]
  - FATIGUE [None]
